FAERS Safety Report 8443148-7 (Version None)
Quarter: 2012Q2

REPORT INFORMATION
  Report Type: 
  Country: None (occurrence: None)
  Receive Date: 20120615
  Receipt Date: 20120607
  Transmission Date: 20120825
  Serious: Yes (Hospitalization, Other)
  Sender: FDA-Public Use
  Company Number: US-MERCK-1109USA00305

PATIENT
  Age: 59 Year
  Sex: Female
  Weight: 61 kg

DRUGS (6)
  1. PREMARIN [Concomitant]
     Route: 065
     Dates: start: 19750101
  2. VITAMINS (UNSPECIFIED) [Concomitant]
     Route: 065
     Dates: start: 20020301
  3. FOSAMAX [Suspect]
     Indication: PROPHYLAXIS
     Route: 048
     Dates: start: 20040101, end: 20061201
  4. BONIVA [Concomitant]
     Indication: PROPHYLAXIS
     Route: 048
     Dates: start: 20061001, end: 20061201
  5. FOSAMAX [Suspect]
     Route: 048
     Dates: start: 20090118
  6. FOSAMAX [Suspect]
     Route: 048
     Dates: start: 19960901, end: 20030201

REACTIONS (26)
  - FEMUR FRACTURE [None]
  - APPENDIX DISORDER [None]
  - ARTHROPATHY [None]
  - ADVERSE EVENT [None]
  - ARTERIOSCLEROSIS [None]
  - ANXIETY [None]
  - FIBULA FRACTURE [None]
  - HYPERSENSITIVITY [None]
  - ORAL DISORDER [None]
  - VERTIGO [None]
  - LACERATION [None]
  - BACK PAIN [None]
  - INTERVERTEBRAL DISC PROTRUSION [None]
  - LUMBAR RADICULOPATHY [None]
  - CERVICOBRACHIAL SYNDROME [None]
  - ROTATOR CUFF SYNDROME [None]
  - TIBIA FRACTURE [None]
  - OSTEOMA [None]
  - EYE DISORDER [None]
  - DEPRESSION [None]
  - BREAST DISORDER [None]
  - UTERINE DISORDER [None]
  - CERVICAL SPINAL STENOSIS [None]
  - OSTEOMALACIA [None]
  - HOT FLUSH [None]
  - HEPATIC CYST [None]
